FAERS Safety Report 24686090 (Version 2)
Quarter: 2024Q4

REPORT INFORMATION
  Report Type: Spontaneous
  Country: NZ (occurrence: NZ)
  Receive Date: 20241202
  Receipt Date: 20241210
  Transmission Date: 20250115
  Serious: Yes (Hospitalization, Other)
  Sender: BIOVITRUM
  Company Number: NZ-BIOVITRUM-2024-NZ-015252

PATIENT
  Age: 4 Week
  Sex: Female
  Weight: 3.5 kg

DRUGS (11)
  1. ANAKINRA [Suspect]
     Active Substance: ANAKINRA
     Indication: Haemophagocytic lymphohistiocytosis
     Dosage: 2MG/KG DAILY
     Route: 042
     Dates: start: 20241111
  2. ANAKINRA [Suspect]
     Active Substance: ANAKINRA
     Indication: Neonatal disorder
     Route: 042
     Dates: start: 20241115
  3. ANAKINRA [Suspect]
     Active Substance: ANAKINRA
     Route: 042
     Dates: start: 20241118
  4. ANAKINRA [Suspect]
     Active Substance: ANAKINRA
     Dosage: DAILY
     Route: 042
     Dates: start: 20241121
  5. ANAKINRA [Suspect]
     Active Substance: ANAKINRA
     Dosage: DAILY
     Route: 042
     Dates: start: 20241124
  6. ANAKINRA [Suspect]
     Active Substance: ANAKINRA
     Dosage: DAILY
     Route: 042
     Dates: start: 20241125
  7. METHYLPREDNISOLONE [Suspect]
     Active Substance: METHYLPREDNISOLONE
     Indication: Haemophagocytic lymphohistiocytosis
     Dosage: FOR 2 DAYS
     Route: 042
     Dates: start: 20241106
  8. ACETAMINOPHEN [Concomitant]
     Active Substance: ACETAMINOPHEN
     Indication: Product used for unknown indication
  9. FLUCONAZOLE [Concomitant]
     Active Substance: FLUCONAZOLE
     Indication: Product used for unknown indication
  10. CEFTAZIDIME [Concomitant]
     Active Substance: CEFTAZIDIME
     Indication: Product used for unknown indication
  11. POTASSIUM [Concomitant]
     Active Substance: POTASSIUM
     Indication: Product used for unknown indication

REACTIONS (3)
  - Pseudomonal sepsis [Unknown]
  - Pneumonia [Unknown]
  - Off label use [Not Recovered/Not Resolved]

NARRATIVE: CASE EVENT DATE: 20241111
